FAERS Safety Report 7703436-6 (Version None)
Quarter: 2011Q3

REPORT INFORMATION
  Report Type: 
  Country: None (occurrence: None)
  Receive Date: 20110823
  Receipt Date: 20110823
  Transmission Date: 20111222
  Serious: No
  Sender: FDA-Public Use
  Company Number: None

PATIENT
  Age: 48 Year
  Sex: Female
  Weight: 61.234 kg

DRUGS (1)
  1. TIOCONAZOLE [Suspect]
     Indication: FUNGAL INFECTION
     Dosage: 1 DOSE
     Route: 067
     Dates: start: 20110816, end: 20110816

REACTIONS (3)
  - RASH [None]
  - PRURITUS [None]
  - PRODUCT QUALITY ISSUE [None]
